FAERS Safety Report 9527693 (Version 1)
Quarter: 2013Q1

REPORT INFORMATION
  Report Type: Spontaneous
  Country: US (occurrence: None)
  Receive Date: 20130314
  Receipt Date: 20130314
  Transmission Date: 20140127
  Serious: No
  Sender: FDA-Public Use
  Company Number: 1212USA003123

PATIENT
  Sex: Female

DRUGS (3)
  1. PEGINTRON (PEGINTERFERON ALFA-2B) POWDER FOR INJECTION [Suspect]
     Dosage: UNK
  2. VICTRELIS (BOCEPREVIR) CAPSULE [Suspect]
     Dosage: ORAL
     Route: 048
  3. RIBASPHERE (RIBAVIRIN) [Suspect]

REACTIONS (2)
  - Confusional state [None]
  - Product quality issue [None]
